FAERS Safety Report 5355275-1 (Version None)
Quarter: 2007Q2

REPORT INFORMATION
  Report Type: 
  Country: None (occurrence: None)
  Receive Date: 20070525
  Receipt Date: 20060524
  Transmission Date: 20071010
  Serious: Yes (Hospitalization)
  Sender: FDA-Public Use
  Company Number: 2006SP002179

PATIENT
  Age: 11 Year
  Sex: Female
  Weight: 42 kg

DRUGS (4)
  1. XOPENEX [Suspect]
     Indication: ASTHMA
     Dosage: ;INHALATION
     Dates: start: 20060522, end: 20060523
  2. XOPENEX [Suspect]
     Indication: CONDITION AGGRAVATED
     Dosage: ;INHALATION
     Dates: start: 20060522, end: 20060523
  3. SINGULAIR [Concomitant]
  4. ALBUTEROL [Concomitant]

REACTIONS (2)
  - ANGIOEDEMA [None]
  - SWOLLEN TONGUE [None]
